FAERS Safety Report 4975627-9 (Version None)
Quarter: 2006Q2

REPORT INFORMATION
  Report Type: 
  Country: None (occurrence: None)
  Receive Date: 20060411
  Receipt Date: 20060324
  Transmission Date: 20061013
  Serious: Yes (Other)
  Sender: FDA-Public Use
  Company Number: US200603006367

PATIENT
  Age: 65 Year
  Sex: Male

DRUGS (2)
  1. INSULIN, ANIMAL (INSULIN, ANIMAL) VIAL [Suspect]
     Indication: DIABETES MELLITUS
     Dates: start: 19810101
  2. HUMAN INSULIN (RDNA ORIGIN) (HUMAN INSULIN (RDNA ORIGIN) [Suspect]
     Indication: DIABETES MELLITUS

REACTIONS (4)
  - ANGER [None]
  - DIABETES MELLITUS INADEQUATE CONTROL [None]
  - PHARMACEUTICAL PRODUCT COMPLAINT [None]
  - VASCULAR OPERATION [None]
